FAERS Safety Report 6955225-8 (Version None)
Quarter: 2010Q3

REPORT INFORMATION
  Report Type: 
  Country: None (occurrence: None)
  Receive Date: 20100830
  Receipt Date: 20100817
  Transmission Date: 20110219
  Serious: Yes (Other)
  Sender: FDA-Public Use
  Company Number: US-ELI_LILLY_AND_COMPANY-US201008005477

PATIENT
  Age: 51 Year
  Sex: Male

DRUGS (1)
  1. ZYPREXA [Suspect]
     Indication: SCHIZOPHRENIA, DISORGANISED TYPE
     Dosage: 30 MG, DAILY (1/D)
     Route: 065
     Dates: start: 20100812

REACTIONS (1)
  - PHAEOCHROMOCYTOMA [None]
